FAERS Safety Report 16759856 (Version 1)
Quarter: 2019Q3

REPORT INFORMATION
  Report Type: Spontaneous
  Country: FR (occurrence: FR)
  Receive Date: 20190830
  Receipt Date: 20190830
  Transmission Date: 20191005
  Serious: Yes (Hospitalization)
  Sender: FDA-Public Use
  Company Number: FR-PFIZER INC-2019367215

PATIENT
  Age: 34 Year
  Sex: Male
  Weight: 68 kg

DRUGS (16)
  1. MOVICOL [Concomitant]
     Active Substance: POLYETHYLENE GLYCOL 3350\POTASSIUM CHLORIDE\SODIUM BICARBONATE\SODIUM CHLORIDE
     Dosage: UNK
     Route: 048
  2. AMIKACIN. [Suspect]
     Active Substance: AMIKACIN
     Indication: SUPERINFECTION BACTERIAL
     Dosage: UNK
     Route: 042
     Dates: start: 20181018
  3. ROCEPHINE [Suspect]
     Active Substance: CEFTRIAXONE SODIUM
     Indication: SUPERINFECTION BACTERIAL
     Dosage: UNK
     Route: 042
     Dates: start: 20181013, end: 20181018
  4. HALDOL [Concomitant]
     Active Substance: HALOPERIDOL
     Route: 048
  5. TAZOCILLINE [Suspect]
     Active Substance: PIPERACILLIN SODIUM\TAZOBACTAM SODIUM
     Indication: SUPERINFECTION BACTERIAL
     Dosage: UNK
     Route: 042
     Dates: start: 20181018
  6. LINEZOLID. [Suspect]
     Active Substance: LINEZOLID
     Indication: SUPERINFECTION BACTERIAL
     Dosage: UNK
     Route: 042
     Dates: start: 20181018
  7. QUINIMAX [Suspect]
     Active Substance: CINCHONIDINE\CINCHONINE\QUINIDINE\QUININE
     Indication: MALARIA
     Dosage: UNK
     Route: 042
     Dates: start: 20181013, end: 20181013
  8. MEROPENEM. [Suspect]
     Active Substance: MEROPENEM
     Indication: SUPERINFECTION BACTERIAL
     Dosage: UNK
     Route: 042
     Dates: start: 20181018
  9. MALACEF [Suspect]
     Active Substance: ARTESUNATE
     Indication: MALARIA
     Dosage: 180 MG, 1X/DAY
     Route: 042
     Dates: start: 20181013, end: 20181016
  10. OLANZAPINE. [Concomitant]
     Active Substance: OLANZAPINE
     Dosage: UNK
     Route: 048
  11. VALIUM [Concomitant]
     Active Substance: DIAZEPAM
     Dosage: UNK
     Route: 048
  12. LOXAPAC [LOXAPINE HYDROCHLORIDE] [Concomitant]
     Dosage: UNK
     Route: 048
  13. DOLIPRANE [Concomitant]
     Active Substance: ACETAMINOPHEN
     Dosage: UNK
     Route: 048
  14. TRILEPTAL [Concomitant]
     Active Substance: OXCARBAZEPINE
     Dosage: UNK
     Route: 048
  15. EURARTESIM [Suspect]
     Active Substance: ARTENIMOL\PIPERAQUINE PHOSPHATE
     Indication: MALARIA
     Dosage: 3 DF, 1X/DAY
     Route: 048
     Dates: start: 20181017, end: 20181017
  16. INEXIUM [ESOMEPRAZOLE MAGNESIUM] [Concomitant]
     Active Substance: ESOMEPRAZOLE MAGNESIUM
     Dosage: UNK
     Route: 048

REACTIONS (1)
  - Haemolytic anaemia [Recovering/Resolving]

NARRATIVE: CASE EVENT DATE: 20181020
